FAERS Safety Report 11840454 (Version 1)
Quarter: 2015Q4

REPORT INFORMATION
  Report Type: Spontaneous
  Country: US (occurrence: None)
  Receive Date: 20151215
  Receipt Date: 20151215
  Transmission Date: 20160305
  Serious: Yes (Other)
  Sender: FDA-Public Use
  Company Number: None

PATIENT
  Age: 59 Year
  Sex: Male
  Weight: 127.01 kg

DRUGS (7)
  1. CRESTOR [Concomitant]
     Active Substance: ROSUVASTATIN CALCIUM
  2. ASPIRIN. [Concomitant]
     Active Substance: ASPIRIN
  3. VERAPAMIL [Concomitant]
     Active Substance: VERAPAMIL HYDROCHLORIDE
  4. BENICAR [Concomitant]
     Active Substance: OLMESARTAN MEDOXOMIL
  5. TRILIPIX [Concomitant]
     Active Substance: FENOFIBRIC ACID
  6. TAMULOSIN [Concomitant]
     Active Substance: TAMSULOSIN
  7. HYDROCODONE-ACETAMINOPHEN 7.5-325 V (COMMON BRANDS) [Suspect]
     Active Substance: ACETAMINOPHEN\HYDROCODONE
     Indication: BACK PAIN
     Route: 048
     Dates: start: 20150911, end: 20151214

REACTIONS (5)
  - Thinking abnormal [None]
  - Product substitution issue [None]
  - Feeling abnormal [None]
  - Drug effect variable [None]
  - Judgement impaired [None]

NARRATIVE: CASE EVENT DATE: 20151214
